FAERS Safety Report 13071131 (Version 2)
Quarter: 2017Q1

REPORT INFORMATION
  Report Type: Spontaneous
  Country: US (occurrence: US)
  Receive Date: 20161229
  Receipt Date: 20170129
  Transmission Date: 20170428
  Serious: No
  Sender: FDA-Public Use
  Company Number: US-009507513-1612USA010926

PATIENT
  Sex: Female
  Weight: 52.43 kg

DRUGS (1)
  1. NEXPLANON [Suspect]
     Active Substance: ETONOGESTREL
     Dosage: 1 IMPLANT/3 YEARS IN ARM
     Route: 059
     Dates: start: 20161104, end: 20170104

REACTIONS (5)
  - Implant site pain [Unknown]
  - Product quality issue [Unknown]
  - Complication associated with device [Not Recovered/Not Resolved]
  - Device expulsion [Recovered/Resolved]
  - Device expulsion [Recovered/Resolved]

NARRATIVE: CASE EVENT DATE: 2016
